FAERS Safety Report 5526464-8 (Version None)
Quarter: 2007Q4

REPORT INFORMATION
  Report Type: 
  Country: None (occurrence: None)
  Receive Date: 20071127
  Receipt Date: 20071122
  Transmission Date: 20080405
  Serious: Yes (Hospitalization)
  Sender: FDA-Public Use
  Company Number: ES-JNJFOC-20071108202

PATIENT
  Age: 84 Year
  Sex: Female

DRUGS (5)
  1. RISPERDAL [Suspect]
     Indication: DRUG USE FOR UNKNOWN INDICATION
     Route: 065
  2. OMEPRAZOLE [Suspect]
     Indication: DRUG USE FOR UNKNOWN INDICATION
     Route: 042
  3. AUGMENTINE PLUS [Suspect]
     Indication: DRUG USE FOR UNKNOWN INDICATION
     Route: 042
  4. ENOXAPARIN SODIUM [Suspect]
     Indication: DRUG USE FOR UNKNOWN INDICATION
     Route: 042
  5. PERFALGAN [Suspect]
     Indication: DRUG USE FOR UNKNOWN INDICATION
     Route: 042

REACTIONS (2)
  - EOSINOPHILIA [None]
  - PRURITUS ALLERGIC [None]
